FAERS Safety Report 9017613 (Version 2)
Quarter: 2013Q1

REPORT INFORMATION
  Report Type: Report from Study
  Country: JP (occurrence: JP)
  Receive Date: 20130117
  Receipt Date: 20130226
  Transmission Date: 20140127
  Serious: Yes (Death)
  Sender: FDA-Public Use
  Company Number: JP-OTSUKA-JP-2013-10070

PATIENT
  Age: 93 Year
  Sex: Female
  Weight: 34 kg

DRUGS (4)
  1. SAMSCA [Suspect]
     Indication: FLUID RETENTION
     Dosage: 15 MG MILLIGRAM(S), QAM
     Route: 048
     Dates: start: 20121227, end: 20130102
  2. LASIX [Concomitant]
     Indication: CARDIAC FAILURE
     Dosage: 20 MG MILLIGRAM(S), DAILY DOSE
     Route: 042
     Dates: start: 20121225, end: 20130102
  3. LASIX [Concomitant]
     Indication: CARDIAC FAILURE
     Dosage: 40 MG MILLIGRAM(S), DAILY DOSE
     Route: 048
     Dates: start: 20121225, end: 20130102
  4. CATABON [Concomitant]
     Indication: CARDIAC FAILURE
     Dosage: 216 MG MILLIGRAM(S), DAILY DOSE
     Route: 041
     Dates: start: 20121225, end: 20130102

REACTIONS (1)
  - Cardiac failure [Fatal]
